FAERS Safety Report 17644783 (Version 1)
Quarter: 2020Q3

REPORT INFORMATION
  Report Type: Spontaneous
  Country: CN (occurrence: CN)
  Receive Date: 20200408
  Receipt Date: 20200408
  Transmission Date: 20201104
  Serious: Yes (Other)
  Sender: FDA-Public Use
  Company Number: CN-ROCHE-2575938

PATIENT
  Age: 33 Year
  Sex: Male

DRUGS (1)
  1. ALECTINIB. [Suspect]
     Active Substance: ALECTINIB
     Indication: METASTATIC NEOPLASM
     Route: 048
     Dates: start: 20180901

REACTIONS (1)
  - Tuberculous pleurisy [Unknown]
